FAERS Safety Report 8269718-7 (Version None)
Quarter: 2012Q2

REPORT INFORMATION
  Report Type: 
  Country: None (occurrence: None)
  Receive Date: 20120406
  Receipt Date: 20120330
  Transmission Date: 20120825
  Serious: Yes (Hospitalization, Other)
  Sender: FDA-Public Use
  Company Number: ADR-2011-10770

PATIENT
  Sex: Female

DRUGS (1)
  1. LIORESAL [Suspect]
     Indication: MUSCLE SPASTICITY
     Dosage: MCG, DAILY, INTRATH
     Route: 037

REACTIONS (14)
  - DRUG WITHDRAWAL SYNDROME [None]
  - WOUND DEHISCENCE [None]
  - MUSCLE SPASTICITY [None]
  - PNEUMONIA ASPIRATION [None]
  - DEVICE LEAKAGE [None]
  - DEVICE KINK [None]
  - HYPOTENSION [None]
  - MUSCLE SPASMS [None]
  - HYPOXIA [None]
  - WOUND SECRETION [None]
  - PRURITUS [None]
  - MYALGIA [None]
  - URINARY TRACT INFECTION [None]
  - INCORRECT DOSE ADMINISTERED BY DEVICE [None]
